FAERS Safety Report 7314084-4 (Version None)
Quarter: 2011Q1

REPORT INFORMATION
  Report Type: 
  Country: None (occurrence: None)
  Receive Date: 20110225
  Receipt Date: 20100427
  Transmission Date: 20110831
  Serious: Yes (Other)
  Sender: FDA-Public Use
  Company Number: US-MYLANLABS-2010S1007416

PATIENT
  Sex: Male

DRUGS (3)
  1. ACCUTANE [Suspect]
     Indication: ACNE
     Dates: start: 19940101, end: 19960101
  2. AMNESTEEM [Suspect]
     Indication: ACNE
     Route: 048
     Dates: start: 20031001, end: 20040301
  3. CLARAVIS [Suspect]
     Indication: ACNE
     Route: 048
     Dates: start: 20030901, end: 20031001

REACTIONS (1)
  - INFLAMMATORY BOWEL DISEASE [None]
